FAERS Safety Report 4465140-X (Version None)
Quarter: 2004Q3

REPORT INFORMATION
  Report Type: 
  Country: None (occurrence: None)
  Receive Date: 20040928
  Receipt Date: 20040928
  Transmission Date: 20050211
  Serious: Yes (Hospitalization)
  Sender: FDA-Public Use
  Company Number: None

PATIENT
  Age: 54 Year
  Sex: Male
  Weight: 91.2 kg

DRUGS (16)
  1. WARFARIN SODIUM [Suspect]
     Dosage: 4MG QHS ORAL
     Route: 048
     Dates: start: 20040604, end: 20040707
  2. ACETAMINOPHEN [Concomitant]
  3. ACETAMINOPHEN W/ CODEINE [Concomitant]
  4. ASCORBIC ACID [Concomitant]
  5. ATENOLOL [Concomitant]
  6. BISACODYL SUPP [Concomitant]
  7. CIPROFLOXACIN [Concomitant]
  8. DIAZEPAM [Concomitant]
  9. DOCUSATE SODIUM [Concomitant]
  10. ENOXAPARIN INJ [Concomitant]
  11. FERROUS SULFATE TAB [Concomitant]
  12. FUROSEMIDE [Concomitant]
  13. METOCLOPRAMIDE HCL [Concomitant]
  14. OMEPRAZOLE [Concomitant]
  15. PROMETHAZINE [Concomitant]
  16. SERTRALINE HCL [Concomitant]

REACTIONS (1)
  - POST PROCEDURAL HAEMATOMA [None]
